FAERS Safety Report 16065128 (Version 1)
Quarter: 2019Q1

REPORT INFORMATION
  Report Type: Spontaneous
  Country: US (occurrence: US)
  Receive Date: 20190211
  Receipt Date: 20190211
  Transmission Date: 20190418
  Serious: No
  Sender: FDA-Public Use
  Company Number: None

PATIENT
  Age: 59 Year
  Sex: Female

DRUGS (1)
  1. ENBREL [Suspect]
     Active Substance: ETANERCEPT
     Indication: RHEUMATOID ARTHRITIS
     Dates: start: 20180901

REACTIONS (4)
  - Tremor [None]
  - Feeling abnormal [None]
  - Headache [None]
  - Condition aggravated [None]

NARRATIVE: CASE EVENT DATE: 20190211
